FAERS Safety Report 8703072 (Version 2)
Quarter: 2013Q4

REPORT INFORMATION
  Report Type: Spontaneous
  Country: US (occurrence: US)
  Receive Date: 20120801
  Receipt Date: 20131105
  Transmission Date: 20140711
  Serious: Yes (Hospitalization)
  Sender: FDA-Public Use
  Company Number: US-009507513-1207USA010813

PATIENT
  Age: 44 Year
  Sex: Female

DRUGS (12)
  1. ZOCOR [Suspect]
     Route: 048
  2. WARFARIN [Suspect]
     Dosage: 1-6 MG, QD
  3. ACETAMINOPHEN [Interacting]
     Dosage: UP TO 4 TIMES DAILY WHEN REQUIRED
     Route: 048
  4. CYMBALTA [Interacting]
  5. AMLODIPINE [Concomitant]
     Route: 048
  6. LIDOCAINE [Concomitant]
     Route: 061
  7. OXYCODONE [Concomitant]
     Route: 048
  8. GABAPENTIN [Concomitant]
     Route: 048
  9. METOPROLOL [Concomitant]
     Route: 048
  10. VITAMINS (UNSPECIFIED) [Concomitant]
     Route: 048
  11. LANTUS [Concomitant]
     Dosage: UNK, HS
  12. INSULIN LISPRO [Concomitant]
     Dosage: 30 MINS BEFORE MEALS

REACTIONS (3)
  - International normalised ratio increased [Unknown]
  - Drug interaction [Unknown]
  - Transaminases increased [Unknown]
